FAERS Safety Report 17172203 (Version 1)
Quarter: 2019Q4

REPORT INFORMATION
  Report Type: Spontaneous
  Country: GB (occurrence: GB)
  Receive Date: 20191218
  Receipt Date: 20191218
  Transmission Date: 20200122
  Serious: Yes (Other)
  Sender: FDA-Public Use
  Company Number: GB-NAPPMUNDI-GBR-2019-0073737

PATIENT
  Sex: Male

DRUGS (2)
  1. SHORTEC [Suspect]
     Active Substance: OXYCODONE HYDROCHLORIDE
     Indication: BREAKTHROUGH PAIN
     Dosage: 5 MG, UNK
     Route: 048
  2. LONGTEC [Suspect]
     Active Substance: OXYCODONE HYDROCHLORIDE
     Indication: PAIN
     Dosage: 80 MG, DAILY (15MG AND 25MG TABLETS - TAKES ONE OF EACH IN MORNING AND AT NIGHT)
     Route: 048

REACTIONS (6)
  - Restless legs syndrome [Unknown]
  - Drug ineffective [Not Recovered/Not Resolved]
  - Yawning [Unknown]
  - Lacrimation increased [Unknown]
  - Withdrawal syndrome [Unknown]
  - Suspected counterfeit product [Unknown]
